FAERS Safety Report 6812799-5 (Version None)
Quarter: 2010Q3

REPORT INFORMATION
  Report Type: 
  Country: None (occurrence: None)
  Receive Date: 20100701
  Receipt Date: 20100628
  Transmission Date: 20110219
  Serious: Yes (Hospitalization)
  Sender: FDA-Public Use
  Company Number: B0662698A

PATIENT
  Sex: Female

DRUGS (2)
  1. AUGMENTIN '125' [Suspect]
     Dosage: 1G THREE TIMES PER DAY
     Route: 048
     Dates: start: 20090129, end: 20090203
  2. CHRONADALATE [Suspect]
     Route: 048
     Dates: end: 20090201

REACTIONS (3)
  - DIARRHOEA [None]
  - DRUG INTOLERANCE [None]
  - NAUSEA [None]
